FAERS Safety Report 6149153-8 (Version None)
Quarter: 2009Q2

REPORT INFORMATION
  Report Type: 
  Country: None (occurrence: None)
  Receive Date: 20090409
  Receipt Date: 20090330
  Transmission Date: 20091009
  Serious: Yes (Other)
  Sender: FDA-Public Use
  Company Number: JP-BRISTOL-MYERS SQUIBB COMPANY-14576219

PATIENT
  Age: 4 Year
  Sex: Male
  Weight: 24 kg

DRUGS (3)
  1. MITOTANE [Suspect]
     Indication: ADRENOCORTICAL CARCINOMA
     Dosage: DOSE INCREASED GRADUALLY BY 0.5G/D UP TO 5G/D
  2. LEUPRORELIN [Concomitant]
     Indication: PRECOCIOUS PUBERTY
  3. HYDROCORTISONE [Concomitant]
     Indication: ADRENAL INSUFFICIENCY

REACTIONS (1)
  - ENCEPHALOPATHY [None]
